FAERS Safety Report 26147698 (Version 1)
Quarter: 2025Q4

REPORT INFORMATION
  Report Type: Spontaneous
  Country: JP (occurrence: JP)
  Receive Date: 20251211
  Receipt Date: 20251211
  Transmission Date: 20260118
  Serious: Yes (Death, Other)
  Sender: AMGEN
  Company Number: JP-KISSEI-TV20251207_P_1

PATIENT

DRUGS (1)
  1. TAVNEOS [Suspect]
     Active Substance: AVACOPAN
     Indication: Anti-neutrophil cytoplasmic antibody positive vasculitis
     Dosage: UNK
     Route: 048

REACTIONS (5)
  - Death [Fatal]
  - Hepatic failure [Unknown]
  - Pneumocystis jirovecii pneumonia [Unknown]
  - Varicella zoster virus infection [Unknown]
  - Infection [Unknown]
